FAERS Safety Report 8029357-X (Version None)
Quarter: 2012Q1

REPORT INFORMATION
  Report Type: 
  Country: None (occurrence: None)
  Receive Date: 20120106
  Receipt Date: 20111228
  Transmission Date: 20120608
  Serious: Yes (Hospitalization)
  Sender: FDA-Public Use
  Company Number: US-ELI_LILLY_AND_COMPANY-US201201000578

PATIENT
  Sex: Female

DRUGS (7)
  1. FORTEO [Suspect]
     Dosage: 20 UG, QD
     Route: 065
  2. CALCIUM ACETATE [Concomitant]
     Dosage: UNK, QID
  3. FORTEO [Suspect]
     Indication: OSTEOPOROSIS
     Dosage: 20 UG, QD
     Route: 065
  4. CALCIUM ACETATE [Concomitant]
     Dosage: UNK, TID
  5. OMEPRAZOLE [Concomitant]
  6. POTASSIUM CHLORIDE [Concomitant]
  7. MELOXICAM [Concomitant]

REACTIONS (2)
  - KNEE OPERATION [None]
  - BLOOD CALCIUM INCREASED [None]
